FAERS Safety Report 7667888-2 (Version None)
Quarter: 2011Q3

REPORT INFORMATION
  Report Type: 
  Country: None (occurrence: None)
  Receive Date: 20110806
  Receipt Date: 20110715
  Transmission Date: 20111222
  Serious: No
  Sender: FDA-Public Use
  Company Number: US-ROXANE LABORATORIES, INC.-2011-RO-01037RO

PATIENT
  Age: 53 Year
  Sex: Female

DRUGS (3)
  1. LITHIUM CARBONATE [Suspect]
  2. LAMICTAL [Concomitant]
  3. KLONOPIN [Concomitant]

REACTIONS (2)
  - MUSCULAR WEAKNESS [None]
  - GAIT DISTURBANCE [None]
